FAERS Safety Report 8794679 (Version 1)
Quarter: 2012Q4

REPORT INFORMATION
  Report Type: 
  Country: US (occurrence: US)
  Receive Date: 20120917
  Receipt Date: 20120917
  Transmission Date: 20130627
  Serious: No
  Sender: FDA-Public Use
  Company Number: US-VERTEX PHARMACEUTICAL INC.-2012-020001

PATIENT
  Age: 57 Year
  Sex: Male
  Weight: 77 kg

DRUGS (8)
  1. METOPROLOL [Concomitant]
     Dosage: 50 mg, UNK
     Route: 048
  2. PRILOSEC                           /00661201/ [Concomitant]
     Dosage: 10 mg, UNK
     Route: 048
  3. NORCO [Concomitant]
     Dosage: 10-325mg
     Route: 048
  4. VX-950 [Suspect]
     Indication: HEPATITIS C
     Dosage: 750 mg, tid
  5. PEGASYS [Concomitant]
     Indication: HEPATITIS C
     Dosage: 180 ?g, UNK
  6. RIBAVIRIN [Concomitant]
     Indication: HEPATITIS C
     Dosage: 200 mg, UNK
     Route: 048
  7. KLONOPIN [Concomitant]
     Dosage: 0.5 mg, UNK
     Route: 048
  8. NORVASC [Concomitant]
     Dosage: 5 mg, UNK
     Route: 048

REACTIONS (3)
  - Influenza like illness [Unknown]
  - Headache [Unknown]
  - Abdominal pain [Unknown]
